FAERS Safety Report 6265516-4 (Version None)
Quarter: 2009Q3

REPORT INFORMATION
  Report Type: 
  Country: None (occurrence: None)
  Receive Date: 20090709
  Receipt Date: 20090709
  Transmission Date: 20100115
  Serious: Yes (Other)
  Sender: FDA-Public Use
  Company Number: None

PATIENT
  Age: 42 Year
  Sex: Female
  Weight: 77.1115 kg

DRUGS (3)
  1. PROGONOL [Suspect]
     Indication: UTERINE ENLARGEMENT
     Dosage: 1 T ON SKIN AM/PM TOP, BETWEEN DAYS 12-28 OF CYCLE
     Route: 061
     Dates: start: 20060714, end: 20060728
  2. PROGONOL [Suspect]
     Indication: UTERINE ENLARGEMENT
     Dosage: 1 T ON SKIN AM/PM TOP, BETWEEN DAYS 12-28 OF CYCLE
     Route: 061
     Dates: start: 20060814, end: 20060828
  3. . [Concomitant]

REACTIONS (3)
  - ANXIETY [None]
  - DIZZINESS [None]
  - PANIC DISORDER [None]
